FAERS Safety Report 6057889-2 (Version None)
Quarter: 2009Q1

REPORT INFORMATION
  Report Type: 
  Country: None (occurrence: None)
  Receive Date: 20090126
  Receipt Date: 20090112
  Transmission Date: 20090719
  Serious: Yes (Hospitalization, Other)
  Sender: FDA-Public Use
  Company Number: 2009AP000086

PATIENT
  Age: 68 Year
  Sex: Male

DRUGS (2)
  1. AMIODARONE HCL [Suspect]
     Dosage: 800 MG, QD;
  2. WARFARIN SODIUM [Concomitant]

REACTIONS (21)
  - ARTHRALGIA [None]
  - ATRIAL FIBRILLATION [None]
  - AXONAL NEUROPATHY [None]
  - BRONCHIOLITIS [None]
  - COUGH [None]
  - CSF PROTEIN INCREASED [None]
  - DRUG TOXICITY [None]
  - DYSARTHRIA [None]
  - FALL [None]
  - GUILLAIN-BARRE SYNDROME [None]
  - HYPOAESTHESIA [None]
  - MUSCULAR WEAKNESS [None]
  - NECROSIS [None]
  - NO THERAPEUTIC RESPONSE [None]
  - ORGANISING PNEUMONIA [None]
  - PAIN IN EXTREMITY [None]
  - PARAESTHESIA [None]
  - PLEURISY [None]
  - PULMONARY MASS [None]
  - RADICULOPATHY [None]
  - WEGENER'S GRANULOMATOSIS [None]
